FAERS Safety Report 20139522 (Version 1)
Quarter: 2021Q4

REPORT INFORMATION
  Report Type: Spontaneous
  Country: IT (occurrence: IT)
  Receive Date: 20211202
  Receipt Date: 20211202
  Transmission Date: 20220303
  Serious: Yes (Hospitalization)
  Sender: FDA-Public Use
  Company Number: IT-MYLANLABS-2021M1088988

PATIENT
  Age: 11 Year
  Sex: Female

DRUGS (2)
  1. RILUZOLE [Suspect]
     Active Substance: RILUZOLE
     Indication: Amyotrophic lateral sclerosis
     Dosage: 50 MILLIGRAM, BID
     Route: 065
  2. HUMAN IMMUNOGLOBULIN G [Suspect]
     Active Substance: HUMAN IMMUNOGLOBULIN G
     Indication: Amyotrophic lateral sclerosis
     Dosage: 60 GRAM DOSE: 60G IN 5 DAYS (HIGH DOSE)
     Route: 042
     Dates: start: 201712

REACTIONS (2)
  - Drug ineffective [Unknown]
  - Off label use [Unknown]
